FAERS Safety Report 24192225 (Version 2)
Quarter: 2024Q3

REPORT INFORMATION
  Report Type: Report from Study
  Country: DE (occurrence: DE)
  Receive Date: 20240809
  Receipt Date: 20240905
  Transmission Date: 20241016
  Serious: No
  Sender: ROCHE
  Company Number: DE-ML39632-2050788-1

PATIENT
  Age: 61 Year
  Sex: Male
  Weight: 63 kg

DRUGS (11)
  1. OCREVUS [Suspect]
     Active Substance: OCRELIZUMAB
     Indication: Relapsing multiple sclerosis
     Route: 042
     Dates: start: 20180830, end: 20180913
  2. OCREVUS [Suspect]
     Active Substance: OCRELIZUMAB
     Route: 042
     Dates: start: 20190314
  3. DIMETHINDENE [Concomitant]
     Active Substance: DIMETHINDENE
     Route: 042
     Dates: start: 20180830, end: 20180913
  4. DIMETHINDENE [Concomitant]
     Active Substance: DIMETHINDENE
     Route: 042
     Dates: start: 20200314
  5. ACETAMINOPHEN [Concomitant]
     Active Substance: ACETAMINOPHEN
     Route: 048
     Dates: start: 20200314
  6. ACETAMINOPHEN [Concomitant]
     Active Substance: ACETAMINOPHEN
     Route: 048
     Dates: start: 20180830, end: 20180913
  7. TAMSULOSIN [Concomitant]
     Active Substance: TAMSULOSIN
     Route: 048
     Dates: end: 202001
  8. CORTISON [Concomitant]
     Route: 042
     Dates: start: 20200314
  9. CORTISON [Concomitant]
     Route: 042
     Dates: start: 20180830, end: 20180913
  10. Comirnaty [Concomitant]
     Route: 030
     Dates: start: 20210430, end: 20210618
  11. DALFAMPRIDINE [Concomitant]
     Active Substance: DALFAMPRIDINE
     Route: 048
     Dates: start: 20141120

REACTIONS (1)
  - Hepatitis B virus test positive [Unknown]

NARRATIVE: CASE EVENT DATE: 20240725
